FAERS Safety Report 6880937-4 (Version None)
Quarter: 2010Q2

REPORT INFORMATION
  Report Type: 
  Country: None (occurrence: None)
  Receive Date: 20100630
  Receipt Date: 20100317
  Transmission Date: 20101027
  Serious: No
  Sender: FDA-Public Use
  Company Number: 1000012529

PATIENT
  Age: 48 Year
  Sex: Male

DRUGS (3)
  1. BYSTOLIC [Suspect]
     Indication: EXERCISE ADEQUATE
     Dosage: 5 MG (5 MG,1 IN 1 D), ORAL
     Route: 048
     Dates: start: 20100314
  2. MICARDIA [Concomitant]
  3. ZETIA [Concomitant]

REACTIONS (4)
  - FACIAL PAIN [None]
  - LETHARGY [None]
  - MALAISE [None]
  - PAIN [None]
